FAERS Safety Report 14319518 (Version 9)
Quarter: 2020Q2

REPORT INFORMATION
  Report Type: Report from Study
  Country: ES (occurrence: ES)
  Receive Date: 20171222
  Receipt Date: 20200514
  Transmission Date: 20200713
  Serious: Yes (Other)
  Sender: FDA-Public Use
  Company Number: ES-SA-2017SA150386

PATIENT
  Age: 36 Year
  Sex: Female

DRUGS (7)
  1. ALEMTUZUMAB [Suspect]
     Active Substance: ALEMTUZUMAB
     Indication: RELAPSING MULTIPLE SCLEROSIS
     Dosage: 12 MG, QD
     Route: 041
     Dates: start: 20170710, end: 20170714
  2. ALEMTUZUMAB [Suspect]
     Active Substance: ALEMTUZUMAB
     Dosage: 12 MG, QD
     Route: 041
     Dates: start: 20180724, end: 20180726
  3. MIRABEGRON [Concomitant]
     Active Substance: MIRABEGRON
     Dosage: 50 MG, QD
     Route: 048
     Dates: start: 2017
  4. ORAL CONTRACEPTIVE NOS [Concomitant]
     Active Substance: UNSPECIFIED INGREDIENT
     Indication: PROPHYLAXIS
     Dosage: UNK
     Route: 048
  5. ORFIDAL [Concomitant]
     Active Substance: LORAZEPAM
     Indication: PROPHYLAXIS
     Dosage: 1 MG, QD
     Route: 048
     Dates: start: 2017
  6. ALEMTUZUMAB [Suspect]
     Active Substance: ALEMTUZUMAB
     Dosage: 12 MG, QD
     Route: 041
     Dates: start: 20191028, end: 20191030
  7. KENTERA [Concomitant]
     Active Substance: OXYBUTYNIN
     Dosage: 3.9 MG, QD
     Route: 023
     Dates: start: 2017

REACTIONS (8)
  - Rash [Recovered/Resolved]
  - Lymphopenia [Recovered/Resolved]
  - Lymphopenia [Recovered/Resolved]
  - Dizziness [Recovered/Resolved]
  - Lymphopenia [Recovered/Resolved]
  - Gait disturbance [Recovering/Resolving]
  - Dysaesthesia [Recovering/Resolving]
  - Alopecia [Recovered/Resolved]

NARRATIVE: CASE EVENT DATE: 20170713
